FAERS Safety Report 14116838 (Version 1)
Quarter: 2017Q4

REPORT INFORMATION
  Report Type: Spontaneous
  Country: JP (occurrence: JP)
  Receive Date: 20171023
  Receipt Date: 20171023
  Transmission Date: 20180321
  Serious: Yes (Hospitalization)
  Sender: FDA-Public Use
  Company Number: JP-MYLANLABS-2017M1065930

PATIENT
  Age: 24 Year
  Sex: Male

DRUGS (1)
  1. DOXORUBICIN [Suspect]
     Active Substance: DOXORUBICIN
     Indication: ACUTE MYELOID LEUKAEMIA
     Dosage: 260 MG/M2
     Route: 065

REACTIONS (5)
  - Intracardiac thrombus [Unknown]
  - Cardiomyopathy [Unknown]
  - Renal infarct [Unknown]
  - Microembolism [Unknown]
  - Splenic infarction [Unknown]
